FAERS Safety Report 13517035 (Version 1)
Quarter: 2017Q2

REPORT INFORMATION
  Report Type: Spontaneous
  Country: US (occurrence: US)
  Receive Date: 20170504
  Receipt Date: 20170504
  Transmission Date: 20170830
  Serious: No
  Sender: FDA-Public Use
  Company Number: None

PATIENT
  Age: 55 Year
  Sex: Female

DRUGS (1)
  1. COPAXONE [Suspect]
     Active Substance: GLATIRAMER ACETATE
     Indication: MULTIPLE SCLEROSIS
     Dosage: 40MG/ML THREE TIMES WEEKLY SUBCUTANEOUSLY
     Route: 058
     Dates: start: 20140501, end: 20170403

REACTIONS (1)
  - Panic attack [None]

NARRATIVE: CASE EVENT DATE: 20170403
